FAERS Safety Report 13139872 (Version 1)
Quarter: 2017Q1

REPORT INFORMATION
  Report Type: Spontaneous
  Country: US (occurrence: US)
  Receive Date: 20170123
  Receipt Date: 20170123
  Transmission Date: 20170428
  Serious: No
  Sender: FDA-Public Use
  Company Number: US-ASTRAZENECA-2017SE03997

PATIENT
  Sex: Female

DRUGS (2)
  1. LYNPARZA [Suspect]
     Active Substance: OLAPARIB
     Indication: INTESTINAL OBSTRUCTION
     Dosage: TWO TIMES A DAY, CAPSULES ARE BEING ADMINISTERED VIA NG TUBE.
     Route: 048
  2. LYNPARZA [Suspect]
     Active Substance: OLAPARIB
     Indication: INTESTINAL OBSTRUCTION
     Dosage: TWO TIMES A DAY
     Route: 048

REACTIONS (6)
  - Product use issue [Unknown]
  - General physical health deterioration [Unknown]
  - Weight decreased [Unknown]
  - Intentional product misuse [Unknown]
  - Gastric disorder [Unknown]
  - Off label use [Unknown]
